FAERS Safety Report 5942833-6 (Version None)
Quarter: 2008Q4

REPORT INFORMATION
  Report Type: 
  Country: None (occurrence: None)
  Receive Date: 20081103
  Receipt Date: 20081024
  Transmission Date: 20090506
  Serious: Yes (Hospitalization)
  Sender: FDA-Public Use
  Company Number: 2008BI024765

PATIENT
  Age: 54 Year
  Sex: Female
  Weight: 63.5036 kg

DRUGS (1)
  1. AVONEX [Suspect]
     Indication: MULTIPLE SCLEROSIS
     Dosage: 30 UG; QW; IM
     Route: 030
     Dates: start: 20031110

REACTIONS (6)
  - BLOOD DISORDER [None]
  - ENCEPHALITIS TOXIC [None]
  - ESCHERICHIA SEPSIS [None]
  - INFECTION [None]
  - SEPSIS [None]
  - UROSEPSIS [None]
